FAERS Safety Report 9030865 (Version 2)
Quarter: 2013Q1

REPORT INFORMATION
  Report Type: Report from Study
  Country: AU (occurrence: AU)
  Receive Date: 20130123
  Receipt Date: 20130320
  Transmission Date: 20140127
  Serious: Yes (Other)
  Sender: FDA-Public Use
  Company Number: AU-ROCHE-1182031

PATIENT
  Age: 66 Year
  Sex: Female

DRUGS (17)
  1. TOCILIZUMAB [Suspect]
     Indication: RHEUMATOID ARTHRITIS
     Route: 042
     Dates: start: 20120118
  2. ASPIRIN [Concomitant]
     Indication: ANTICOAGULANT THERAPY
     Route: 065
  3. CRESTOR [Concomitant]
     Route: 065
  4. OMEPRAZOLE [Concomitant]
     Route: 065
  5. COVERSYL PLUS [Concomitant]
     Indication: BLOOD PRESSURE
     Route: 065
  6. FRUSEMIDE [Concomitant]
     Route: 065
  7. METFORMIN HYDROCHLORIDE [Concomitant]
     Dosage: IN EVENING
     Route: 065
  8. GLICLAZIDE [Concomitant]
     Route: 065
  9. PARACETAMOL [Concomitant]
     Indication: ANALGESIC THERAPY
     Route: 065
  10. CLOPIDOGREL [Concomitant]
     Indication: ANTICOAGULANT THERAPY
     Route: 065
  11. METHOTREXATE [Concomitant]
     Route: 065
  12. FOLIC ACID [Concomitant]
     Route: 065
  13. PREDNISOLONE [Concomitant]
     Route: 065
  14. CALCIUM CARBONATE [Concomitant]
     Route: 065
  15. CHOLECALCIFEROL [Concomitant]
     Route: 065
  16. FISH OIL [Concomitant]
     Route: 065
  17. ALDACTONE [Concomitant]
     Route: 065

REACTIONS (6)
  - Pain [Not Recovered/Not Resolved]
  - Musculoskeletal stiffness [Not Recovered/Not Resolved]
  - Joint stiffness [Not Recovered/Not Resolved]
  - Musculoskeletal stiffness [Not Recovered/Not Resolved]
  - Hypotension [Unknown]
  - Hypotension [Recovered/Resolved]
